FAERS Safety Report 17768790 (Version 1)
Quarter: 2020Q2

REPORT INFORMATION
  Report Type: Spontaneous
  Country: NL (occurrence: NL)
  Receive Date: 20200512
  Receipt Date: 20200512
  Transmission Date: 20200714
  Serious: Yes (Death)
  Sender: FDA-Public Use
  Company Number: NL-ACTELION-A-CH2020-204860

PATIENT

DRUGS (3)
  1. SILDENAFIL. [Concomitant]
     Active Substance: SILDENAFIL
  2. RIOCIGUAT. [Concomitant]
     Active Substance: RIOCIGUAT
  3. OPSUMIT [Suspect]
     Active Substance: MACITENTAN
     Indication: PULMONARY HYPERTENSION
     Route: 048

REACTIONS (8)
  - Nausea [Unknown]
  - Upper respiratory tract infection [Unknown]
  - Headache [Unknown]
  - Condition aggravated [Unknown]
  - Death [Fatal]
  - Anaemia [Unknown]
  - Pulmonary hypertension [Unknown]
  - Fatigue [Unknown]
